FAERS Safety Report 8506640-2 (Version None)
Quarter: 2012Q3

REPORT INFORMATION
  Report Type: 
  Country: None (occurrence: None)
  Receive Date: 20120712
  Receipt Date: 20120710
  Transmission Date: 20120928
  Serious: No
  Sender: FDA-Public Use
  Company Number: US-PFIZER INC-2012165908

PATIENT
  Sex: Female
  Weight: 58.957 kg

DRUGS (3)
  1. PRISTIQ [Suspect]
     Dosage: 50 MG, ALTERNATE DAY
     Route: 048
     Dates: start: 20120601
  2. ORTHO CYCLEN-28 [Concomitant]
     Indication: CONTRACEPTION
     Dosage: UNK
  3. PRISTIQ [Suspect]
     Indication: ANXIETY
     Dosage: 50 MG, 1X/DAY
     Route: 048
     Dates: start: 20100501, end: 20120601

REACTIONS (4)
  - CRYING [None]
  - NAUSEA [None]
  - ANXIETY [None]
  - DIZZINESS [None]
